FAERS Safety Report 5334922-4 (Version None)
Quarter: 2007Q2

REPORT INFORMATION
  Report Type: 
  Country: None (occurrence: None)
  Receive Date: 20070525
  Receipt Date: 20060516
  Transmission Date: 20071010
  Serious: Yes (Hospitalization)
  Sender: FDA-Public Use
  Company Number: FR-ROCHE-448144

PATIENT
  Age: 20 Month
  Sex: Male
  Weight: 12 kg

DRUGS (1)
  1. VALIUM [Suspect]
     Indication: DRUG USE FOR UNKNOWN INDICATION
     Route: 054
     Dates: start: 20060409, end: 20060409

REACTIONS (3)
  - APNOEA [None]
  - BRADYCARDIA [None]
  - HYPOTONIA [None]
